FAERS Safety Report 5975993-1 (Version None)
Quarter: 2008Q4

REPORT INFORMATION
  Report Type: 
  Country: None (occurrence: None)
  Receive Date: 20081202
  Receipt Date: 20081118
  Transmission Date: 20090506
  Serious: Yes (Congenital Anomaly)
  Sender: FDA-Public Use
  Company Number: SE-CELGENEUS-TNZSE200400044

PATIENT
  Sex: Female

DRUGS (2)
  1. INNOHEP [Suspect]
     Route: 064
     Dates: start: 20030101, end: 20030101
  2. FRAGMIN [Concomitant]
     Route: 064
     Dates: start: 20030101, end: 20030101

REACTIONS (2)
  - CONGENITAL GENITOURINARY ABNORMALITY [None]
  - DRUG EXPOSURE DURING PREGNANCY [None]
